FAERS Safety Report 4527985-7 (Version None)
Quarter: 2004Q4

REPORT INFORMATION
  Report Type: 
  Country: None (occurrence: None)
  Receive Date: 20041123
  Receipt Date: 20040503
  Transmission Date: 20050328
  Serious: Yes (Hospitalization, Other)
  Sender: FDA-Public Use
  Company Number: 2004008708

PATIENT
  Age: 51 Year
  Sex: Female

DRUGS (8)
  1. LIPITOR [Suspect]
     Indication: HYPERLIPIDAEMIA
     Dosage: ORAL
     Route: 048
     Dates: start: 20031001, end: 20040201
  2. METOPROLOL TARTRATE [Concomitant]
  3. ISOSORBIDE MONONITRATE [Concomitant]
  4. PRINZIDE [Concomitant]
  5. FUROSEMIDE [Concomitant]
  6. PANTOPRAZOLE (PANTOPRAZOLE) [Concomitant]
  7. GABAPENTIN [Concomitant]
  8. ISOPHANE INSULIN [Concomitant]

REACTIONS (2)
  - BLOOD TRIGLYCERIDES INCREASED [None]
  - PANCREATITIS [None]
